FAERS Safety Report 16781618 (Version 1)
Quarter: 2019Q3

REPORT INFORMATION
  Report Type: Spontaneous
  Country: IR (occurrence: IR)
  Receive Date: 20190906
  Receipt Date: 20190906
  Transmission Date: 20191005
  Serious: Yes (Death)
  Sender: FDA-Public Use
  Company Number: IR-ACTELION-A-CH2019-195279

PATIENT

DRUGS (2)
  1. TADALAFIL. [Suspect]
     Active Substance: TADALAFIL
     Indication: PULMONARY HYPERTENSION
     Route: 048
  2. BOSENTAN. [Suspect]
     Active Substance: BOSENTAN
     Indication: PULMONARY HYPERTENSION
     Route: 048

REACTIONS (3)
  - Right ventricular failure [Fatal]
  - Headache [Unknown]
  - Transaminases increased [Unknown]
